FAERS Safety Report 21118554 (Version 5)
Quarter: 2022Q4

REPORT INFORMATION
  Report Type: Report from Study
  Country: DE (occurrence: DE)
  Receive Date: 20220722
  Receipt Date: 20221013
  Transmission Date: 20230112
  Serious: Yes (Hospitalization, Other)
  Sender: FDA-Public Use
  Company Number: DE-NOVARTISPH-NVSC2022DE161468

PATIENT
  Sex: Female
  Weight: 99 kg

DRUGS (6)
  1. KISQALI [Suspect]
     Active Substance: RIBOCICLIB
     Indication: Hormone receptor positive HER2 negative breast cancer
     Dosage: 400 MG, QD (SCHEMA 21 DAYS INTAKE, 7 DAYS PAUSE )
     Route: 048
     Dates: start: 20200313, end: 20200409
  2. KISQALI [Suspect]
     Active Substance: RIBOCICLIB
     Dosage: 400 MG, QD (SCHEMA 21 DAYS INTAKE, 7 DAYS PAUSE )
     Route: 048
     Dates: start: 20200525, end: 20211101
  3. KISQALI [Suspect]
     Active Substance: RIBOCICLIB
     Dosage: 400 MG, QD (SCHEMA 21 DAYS INTAKE, 7 DAYS PAUSE )
     Route: 048
     Dates: start: 20211223
  4. LETROZOLE [Suspect]
     Active Substance: LETROZOLE
     Indication: Breast cancer metastatic
     Dosage: 2.5 MG, QD
     Route: 048
     Dates: start: 20200313
  5. LOSARTAN [Concomitant]
     Active Substance: LOSARTAN
     Indication: Product use in unapproved indication
     Dosage: 50 MG, QD (ONCE IN THE MORNING)
     Route: 048
     Dates: start: 20200113
  6. METFORMIN [Concomitant]
     Active Substance: METFORMIN HYDROCHLORIDE
     Indication: Product use in unapproved indication
     Dosage: 500 MG, QD (ONCE IN THE MORNING)
     Route: 048
     Dates: start: 20201023

REACTIONS (3)
  - Renal failure [Recovered/Resolved]
  - Pustular psoriasis [Recovering/Resolving]
  - Erysipelas [Recovered/Resolved]

NARRATIVE: CASE EVENT DATE: 20220512
